FAERS Safety Report 6175153-8 (Version None)
Quarter: 2009Q2

REPORT INFORMATION
  Report Type: 
  Country: None (occurrence: None)
  Receive Date: 20090430
  Receipt Date: 20090225
  Transmission Date: 20091009
  Serious: No
  Sender: FDA-Public Use
  Company Number: US-ASTRAZENECA-2009UW01002

PATIENT
  Age: 66 Year
  Sex: Male
  Weight: 99.8 kg

DRUGS (3)
  1. NEXIUM [Suspect]
     Indication: GASTROOESOPHAGEAL REFLUX DISEASE
     Route: 048
     Dates: start: 19990101, end: 20090223
  2. SIMVASTATIN [Concomitant]
  3. VITAMIN PILLS [Concomitant]

REACTIONS (2)
  - DYSPHAGIA [None]
  - OROPHARYNGEAL PAIN [None]
